FAERS Safety Report 10236432 (Version 1)
Quarter: 2014Q2

REPORT INFORMATION
  Report Type: Spontaneous
  Country: US (occurrence: None)
  Receive Date: 20140612
  Receipt Date: 20140612
  Transmission Date: 20141212
  Serious: Yes (Other)
  Sender: FDA-Public Use
  Company Number: None

PATIENT
  Age: 46 Year
  Sex: Female
  Weight: 109.77 kg

DRUGS (9)
  1. TECFIDERA 240MG BIOGEN [Suspect]
     Route: 048
     Dates: start: 201306
  2. LIOTHYRONINE (CYTOMEL) 5MCG PO TABLET [5214587] [Concomitant]
  3. OMEPRAZOLE (PRILOSEC) 20 MG PO CAPSULE [5214657] [Concomitant]
  4. ESCITALOPRAM (LEXAPRO) 10 MG PO TABLET [5215077] [Concomitant]
  5. BIOTIN [4603113] [Concomitant]
  6. LEVOTHYROXINE (LEVOTHROID) 125 MCG PO TABLET [4265308] [Concomitant]
  7. ONDANSETRON (ZOFRAN) 4 MG PO TABLET [4038475] [Concomitant]
  8. IBUPROFEN (MOTRIN) 800 MG PO TABLET [3907095] [Concomitant]
  9. CHOLECALIFEROL (D-3-5) 5000 UNIT PO CAPS [3907096] [Concomitant]

REACTIONS (2)
  - Burns second degree [None]
  - T-lymphocyte count decreased [None]
